FAERS Safety Report 8318358-X (Version None)
Quarter: 2012Q2

REPORT INFORMATION
  Report Type: 
  Country: None (occurrence: None)
  Receive Date: 20120427
  Receipt Date: 20120418
  Transmission Date: 20120825
  Serious: Yes (Hospitalization)
  Sender: FDA-Public Use
  Company Number: DK-AMGEN-DNKCT2012009334

PATIENT
  Age: 29 Year
  Sex: Female

DRUGS (3)
  1. ETANERCEPT [Suspect]
     Indication: ANKYLOSING SPONDYLITIS
     Dosage: 50 MG, QWK
     Dates: start: 20100611, end: 20111201
  2. ETANERCEPT [Suspect]
     Dosage: 50 MG, WEEKLY, STOP LATEST ON 01DEC2011
     Dates: start: 20100611, end: 20111201
  3. VITACAL                            /00241701/ [Concomitant]
     Dosage: 2 TABLETS DAILY

REACTIONS (1)
  - ERYTHEMA NODOSUM [None]
